FAERS Safety Report 15138169 (Version 3)
Quarter: 2021Q1

REPORT INFORMATION
  Report Type: Spontaneous
  Country: GB (occurrence: GB)
  Receive Date: 20180713
  Receipt Date: 20210215
  Transmission Date: 20210419
  Serious: Yes (Hospitalization)
  Sender: FDA-Public Use
  Company Number: GB-TEVA-2018-GB-924466

PATIENT
  Age: 70 Year
  Sex: Female
  Weight: 66.67 kg

DRUGS (8)
  1. BISOPROLOL [Concomitant]
     Active Substance: BISOPROLOL
  2. BECONASE AQ [Concomitant]
     Active Substance: BECLOMETHASONE DIPROPIONATE MONOHYDRATE
  3. FLECAINIDE [Concomitant]
     Active Substance: FLECAINIDE
  4. LEVOTHYROXINE SODIUM. [Concomitant]
     Active Substance: LEVOTHYROXINE SODIUM
  5. ACCORD?UK DOXYCYCLINE [Suspect]
     Active Substance: DOXYCYCLINE HYCLATE
     Indication: DRUG HYPERSENSITIVITY
     Dosage: STRENGTH: 50 AND 100 MG DOSE: 100 FREQUENCY: 2 CAP INITIALLY , 50 MG??ACCORD?UK DOXYCYCLINE
     Route: 048
     Dates: start: 20180207, end: 20180207
  6. XARELTO [Concomitant]
     Active Substance: RIVAROXABAN
  7. DOXYCYCLINE HYCLATE. [Suspect]
     Active Substance: DOXYCYCLINE HYCLATE
     Indication: SINUSITIS
     Dosage: STRENGTH: 50 AND 100 MG DOSE: 100 FREQUENCY: 2 CAP INITIALLY
     Route: 048
     Dates: start: 20180207, end: 20180207
  8. FLUOXETINE [Concomitant]
     Active Substance: FLUOXETINE HYDROCHLORIDE

REACTIONS (3)
  - Nausea [Recovered/Resolved with Sequelae]
  - Amnesia [Recovered/Resolved with Sequelae]
  - Vomiting [Recovered/Resolved with Sequelae]

NARRATIVE: CASE EVENT DATE: 20180207
